FAERS Safety Report 7444229-7 (Version None)
Quarter: 2011Q2

REPORT INFORMATION
  Report Type: 
  Country: None (occurrence: None)
  Receive Date: 20110429
  Receipt Date: 20100421
  Transmission Date: 20111010
  Serious: No
  Sender: FDA-Public Use
  Company Number: US-BAYER-201020977NA

PATIENT
  Age: 41 Year
  Sex: Female

DRUGS (3)
  1. YAZ [Suspect]
  2. THYROID THERAPY [Concomitant]
  3. MIGRAINE MEDICINE [Concomitant]

REACTIONS (5)
  - MIGRAINE [None]
  - FATIGUE [None]
  - WEIGHT INCREASED [None]
  - FLATULENCE [None]
  - ABDOMINAL DISTENSION [None]
